FAERS Safety Report 8052498-8 (Version None)
Quarter: 2012Q1

REPORT INFORMATION
  Report Type: 
  Country: None (occurrence: None)
  Receive Date: 20120118
  Receipt Date: 20120110
  Transmission Date: 20120608
  Serious: Yes (Hospitalization)
  Sender: FDA-Public Use
  Company Number: FR-PFIZER INC-2011305542

PATIENT
  Age: 11 Year
  Sex: Female
  Weight: 36 kg

DRUGS (2)
  1. ACETAMINOPHEN [Concomitant]
  2. PEDIATRIC ADVIL [Suspect]
     Indication: PYREXIA
     Dosage: 4 DOSAGE FORMS/DAY, 1 DF ONCE EVERY 6 HOURS
     Route: 048
     Dates: start: 20111114, end: 20111116

REACTIONS (6)
  - TUBULOINTERSTITIAL NEPHRITIS [None]
  - POLLAKIURIA [None]
  - POLYDIPSIA [None]
  - BACK PAIN [None]
  - VOMITING [None]
  - RENAL FAILURE ACUTE [None]
